FAERS Safety Report 7130840-X (Version None)
Quarter: 2010Q4

REPORT INFORMATION
  Report Type: 
  Country: None (occurrence: None)
  Receive Date: 20101201
  Receipt Date: 20101117
  Transmission Date: 20110411
  Serious: Yes (Hospitalization, Other)
  Sender: FDA-Public Use
  Company Number: US-ELI_LILLY_AND_COMPANY-US201005001262

PATIENT
  Sex: Female

DRUGS (7)
  1. FORTEO [Suspect]
     Indication: OSTEOPOROSIS
     Dosage: 20 UG, DAILY (1/D)
     Dates: start: 20090310
  2. FORTEO [Suspect]
     Dosage: 20 UG, DAILY (1/D)
     Dates: start: 20090310
  3. VITAMIN TAB [Concomitant]
  4. RYTHMOL [Concomitant]
  5. IMDUR [Concomitant]
  6. NORVASC [Concomitant]
  7. PLAVIX [Concomitant]

REACTIONS (10)
  - ASTHENIA [None]
  - BALANCE DISORDER [None]
  - FALL [None]
  - FEELING ABNORMAL [None]
  - INFLUENZA [None]
  - INJECTION SITE PAIN [None]
  - PAIN [None]
  - PRODUCTIVE COUGH [None]
  - THYROID ADENOMA [None]
  - TREMOR [None]
